FAERS Safety Report 11684448 (Version 9)
Quarter: 2018Q4

REPORT INFORMATION
  Report Type: Spontaneous
  Country: US (occurrence: US)
  Receive Date: 20151029
  Receipt Date: 20181129
  Transmission Date: 20190204
  Serious: Yes (Hospitalization)
  Sender: FDA-Public Use
  Company Number: US-PFIZER INC-2015357046

PATIENT
  Age: 63 Year
  Sex: Male
  Weight: 91 kg

DRUGS (5)
  1. LYRICA [Suspect]
     Active Substance: PREGABALIN
     Indication: NEURALGIA
  2. LYRICA [Suspect]
     Active Substance: PREGABALIN
     Indication: NEUROPATHY PERIPHERAL
     Dosage: 200 MG, FOUR TIMES DAILY
     Route: 048
     Dates: end: 201807
  3. LYRICA [Suspect]
     Active Substance: PREGABALIN
     Indication: NERVE INJURY
  4. LYRICA [Suspect]
     Active Substance: PREGABALIN
     Indication: BACK PAIN
     Dosage: 200 MG, FOUR TIMES DAILY
     Route: 048
     Dates: start: 2014
  5. LYRICA [Suspect]
     Active Substance: PREGABALIN
     Indication: HYPOAESTHESIA
     Dosage: 200 MG, FOUR TIMES DAILY
     Route: 048

REACTIONS (10)
  - Fall [Unknown]
  - Neck pain [Unknown]
  - Drug ineffective [Unknown]
  - Muscular weakness [Unknown]
  - Head injury [Unknown]
  - Balance disorder [Recovering/Resolving]
  - Neck injury [Recovering/Resolving]
  - Lipoma [Unknown]
  - Prescribed overdose [Unknown]
  - Intentional product use issue [Unknown]

NARRATIVE: CASE EVENT DATE: 2014
